FAERS Safety Report 7743157-7 (Version None)
Quarter: 2011Q3

REPORT INFORMATION
  Report Type: 
  Country: None (occurrence: None)
  Receive Date: 20110825
  Receipt Date: 20110824
  Transmission Date: 20111222
  Serious: Yes (Other)
  Sender: FDA-Public Use
  Company Number: 2011SP037118

PATIENT
  Age: 57 Year
  Sex: Male
  Weight: 74.8 kg

DRUGS (3)
  1. MIRALAX [Suspect]
     Indication: CONSTIPATION
     Dosage: ;ONCE;PO
     Route: 048
     Dates: start: 20110804, end: 20110804
  2. CARVEDILOL [Concomitant]
  3. PRAVASTATIN [Concomitant]

REACTIONS (12)
  - SWOLLEN TONGUE [None]
  - ANAPHYLACTIC SHOCK [None]
  - OCULAR HYPERAEMIA [None]
  - DIZZINESS [None]
  - DRUG HYPERSENSITIVITY [None]
  - PALLOR [None]
  - TREMOR [None]
  - FEELING COLD [None]
  - VOMITING [None]
  - FEELING ABNORMAL [None]
  - GENITAL RASH [None]
  - DYSPNOEA [None]
